FAERS Safety Report 21462198 (Version 1)
Quarter: 2022Q4

REPORT INFORMATION
  Report Type: Spontaneous
  Country: US (occurrence: US)
  Receive Date: 20221016
  Receipt Date: 20221016
  Transmission Date: 20230112
  Serious: Yes (Other)
  Sender: FDA-Public Use
  Company Number: US-drreddys-LIT/USA/22/0155775

PATIENT
  Age: 2 Year
  Sex: Female

DRUGS (5)
  1. BORTEZOMIB [Suspect]
     Active Substance: BORTEZOMIB
     Indication: Acute myeloid leukaemia
     Dosage: 1.3 MG/M2 TWICE A WEEK (ON DAYS 1 AND 4)
     Route: 042
  2. VORINOSTAT [Suspect]
     Active Substance: VORINOSTAT
     Indication: Acute myeloid leukaemia
     Dosage: 180 MG/M2/DOSE DAILY FOR 4 DOSES EACH WEEK (ON DAYS 1 TO 4)
     Route: 048
  3. ETOPOSIDE [Concomitant]
     Active Substance: ETOPOSIDE
     Indication: Acute myeloid leukaemia
  4. VINCRISTINE [Concomitant]
     Active Substance: VINCRISTINE
     Indication: Acute myeloid leukaemia
  5. HYDROXYUREA [Concomitant]
     Active Substance: HYDROXYUREA
     Indication: Acute myeloid leukaemia

REACTIONS (4)
  - Condition aggravated [Unknown]
  - Acute respiratory failure [Unknown]
  - Metapneumovirus infection [Unknown]
  - Pulmonary toxicity [Unknown]
